FAERS Safety Report 14551339 (Version 1)
Quarter: 2018Q1

REPORT INFORMATION
  Report Type: Spontaneous
  Country: CA (occurrence: CA)
  Receive Date: 20180220
  Receipt Date: 20180220
  Transmission Date: 20180509
  Serious: Yes (Hospitalization)
  Sender: FDA-Public Use
  Company Number: CA-AMGEN-CANSP2018022102

PATIENT
  Age: 55 Year
  Sex: Female

DRUGS (4)
  1. METHOTREXATE SODIUM. [Suspect]
     Active Substance: METHOTREXATE SODIUM
     Indication: RHEUMATOID ARTHRITIS
     Dosage: UNK
     Route: 065
  2. APO-PREDNISONE [Suspect]
     Active Substance: PREDNISONE
     Indication: PRODUCT USED FOR UNKNOWN INDICATION
     Dosage: 5 MG, UNK
     Route: 065
  3. PLAQUENIL [Suspect]
     Active Substance: HYDROXYCHLOROQUINE SULFATE
     Indication: RHEUMATOID ARTHRITIS
     Dosage: UNK
     Route: 065
  4. ENBREL [Suspect]
     Active Substance: ETANERCEPT
     Indication: RHEUMATOID ARTHRITIS
     Dosage: UNK
     Route: 065

REACTIONS (18)
  - Back pain [Recovered/Resolved]
  - Weight increased [Recovered/Resolved]
  - Drug ineffective [Recovered/Resolved]
  - Hypersensitivity [Recovered/Resolved]
  - Pharyngitis streptococcal [Recovered/Resolved]
  - Psychomotor hyperactivity [Recovered/Resolved]
  - Skin discolouration [Recovered/Resolved]
  - Drug hypersensitivity [Recovered/Resolved]
  - Skin disorder [Recovered/Resolved]
  - Lung disorder [Recovered/Resolved]
  - Muscle disorder [Recovered/Resolved]
  - Red blood cell sedimentation rate increased [Recovered/Resolved]
  - Injection site reaction [Recovered/Resolved]
  - Angiopathy [Recovered/Resolved]
  - Fatigue [Recovered/Resolved]
  - Musculoskeletal disorder [Recovered/Resolved]
  - Viral pharyngitis [Recovered/Resolved]
  - Cough [Recovered/Resolved]
